FAERS Safety Report 8928705 (Version 1)
Quarter: 2012Q4

REPORT INFORMATION
  Report Type: 
  Country: GB (occurrence: US)
  Receive Date: 20121128
  Receipt Date: 20121128
  Transmission Date: 20130627
  Serious: Yes (Death, Hospitalization)
  Sender: FDA-Public Use
  Company Number: US-009507513-1211USA010167

PATIENT
  Age: 88 Year
  Sex: Female
  Weight: 58.8 kg

DRUGS (9)
  1. TEMOZOLOMIDE [Suspect]
     Indication: GLIOBLASTOMA
     Dosage: 310 mg, qd
     Route: 048
     Dates: start: 20100201, end: 20100205
  2. BEVACIZUMAB [Suspect]
     Indication: GLIOBLASTOMA
     Dosage: 588 mg,1 in 2 wk
     Route: 042
     Dates: start: 20100201
  3. IRINOTECAN HYDROCHLORIDE [Suspect]
     Indication: GLIOBLASTOMA
     Dosage: 196 units not provided, 1 in 2 wk
     Route: 042
     Dates: start: 20100201
  4. GABAPENTIN [Concomitant]
     Dosage: 2DF(1DF,2 in 1D)
  5. KEPPRA [Concomitant]
     Dosage: 1000mg(500 mg, 2in 1D)
  6. SINGULAIR [Concomitant]
  7. CALTRATE [Concomitant]
  8. VITAMINS (UNSPECIFIED) [Concomitant]
  9. VITAMIN D (UNSPECIFIED) [Concomitant]

REACTIONS (3)
  - Pancytopenia [Unknown]
  - Hyponatraemia [Unknown]
  - Gastrointestinal haemorrhage [Fatal]
